FAERS Safety Report 22982130 (Version 2)
Quarter: 2023Q4

REPORT INFORMATION
  Report Type: Spontaneous
  Country: FR (occurrence: FR)
  Receive Date: 20230926
  Receipt Date: 20231011
  Transmission Date: 20240110
  Serious: Yes (Other)
  Sender: FDA-Public Use
  Company Number: FR-CELLTRION INC.-2023FR018476

PATIENT

DRUGS (5)
  1. BEVACIZUMAB [Suspect]
     Active Substance: BEVACIZUMAB
     Indication: Mixed hepatocellular cholangiocarcinoma
     Dosage: 15 MILLIGRAM PER KILOGRAM, Q3WK/EVERY 3 WEEKS
     Route: 065
  2. BEVACIZUMAB [Suspect]
     Active Substance: BEVACIZUMAB
     Indication: Mixed hepatocellular cholangiocarcinoma
     Dosage: 15 MILLIGRAM PER KILOGRAM, Q3WK/EVERY 3 WEEKS
     Route: 065
  3. ATEZOLIZUMAB [Suspect]
     Active Substance: ATEZOLIZUMAB
     Indication: Mixed hepatocellular cholangiocarcinoma
     Dosage: 1200 MILLIGRAM, Q3WK/EVERY 3 WEEKS
     Route: 065
  4. SORAFENIB [Concomitant]
     Active Substance: SORAFENIB
     Indication: Mixed hepatocellular cholangiocarcinoma
  5. REGORAFENIB [Concomitant]
     Active Substance: REGORAFENIB
     Indication: Mixed hepatocellular cholangiocarcinoma

REACTIONS (6)
  - Metastasis [Unknown]
  - Mixed hepatocellular cholangiocarcinoma [Not Recovered/Not Resolved]
  - Disease progression [Not Recovered/Not Resolved]
  - Gene mutation [Unknown]
  - Therapy non-responder [Unknown]
  - Off label use [Unknown]
